FAERS Safety Report 18493617 (Version 1)
Quarter: 2020Q4

REPORT INFORMATION
  Report Type: Spontaneous
  Country: US (occurrence: US)
  Receive Date: 20201111
  Receipt Date: 20201111
  Transmission Date: 20210114
  Serious: Yes (Hospitalization)
  Sender: FDA-Public Use
  Company Number: US-TAKEDA-2020TUS047653

PATIENT
  Sex: Male
  Weight: 59.86 kg

DRUGS (45)
  1. DIPHENHYDRAMINE. [Concomitant]
     Active Substance: DIPHENHYDRAMINE
  2. LIDOCAINE. [Concomitant]
     Active Substance: LIDOCAINE
  3. LORATADINE. [Concomitant]
     Active Substance: LORATADINE
  4. DESONIDE. [Concomitant]
     Active Substance: DESONIDE
  5. FLUTICASONE. [Concomitant]
     Active Substance: FLUTICASONE
  6. TRIAMCINOLONE ACETONIDE. [Concomitant]
     Active Substance: TRIAMCINOLONE ACETONIDE
  7. GABAPENTIN. [Concomitant]
     Active Substance: GABAPENTIN
  8. TRAMADOL. [Concomitant]
     Active Substance: TRAMADOL
  9. HYQVIA [Suspect]
     Active Substance: HUMAN IMMUNOGLOBULIN G\HYALURONIDASE RECOMBINANT HUMAN
     Indication: IMMUNODEFICIENCY COMMON VARIABLE
     Dosage: 45 GRAM, EVERY 3 TO 4 WEEKS
     Route: 058
     Dates: start: 20170424
  10. PREDNISONE. [Concomitant]
     Active Substance: PREDNISONE
  11. DOXYCYCLINE HYCLATE. [Concomitant]
     Active Substance: DOXYCYCLINE HYCLATE
  12. HYDRALAZINE [Concomitant]
     Active Substance: HYDRALAZINE HYDROCHLORIDE
  13. PROAIR HFA [Concomitant]
     Active Substance: ALBUTEROL SULFATE
  14. AMLODIPINE [Concomitant]
     Active Substance: AMLODIPINE BESYLATE
  15. SPIRONOLACTONE. [Concomitant]
     Active Substance: SPIRONOLACTONE
  16. BUPROPION HYDROCHLORIDE XL [Concomitant]
     Active Substance: BUPROPION HYDROCHLORIDE
  17. DICYCLOMINE [Concomitant]
     Active Substance: DICYCLOMINE HYDROCHLORIDE
  18. TELMISARTAN. [Concomitant]
     Active Substance: TELMISARTAN
  19. TRETINOIN. [Concomitant]
     Active Substance: TRETINOIN
  20. RESTASIS [Concomitant]
     Active Substance: CYCLOSPORINE
  21. REMICADE [Concomitant]
     Active Substance: INFLIXIMAB
  22. ACETAMINOPHEN. [Concomitant]
     Active Substance: ACETAMINOPHEN
  23. ZOFRAN [Concomitant]
     Active Substance: ONDANSETRON HYDROCHLORIDE
  24. ALBUTEROL SULFATE. [Concomitant]
     Active Substance: ALBUTEROL SULFATE
  25. TRAZODONE [Concomitant]
     Active Substance: TRAZODONE HYDROCHLORIDE
  26. MONTELUKAST [Concomitant]
     Active Substance: MONTELUKAST SODIUM
  27. LOSARTAN POTASSIUM. [Concomitant]
     Active Substance: LOSARTAN POTASSIUM
  28. ADVAIR HFA [Concomitant]
     Active Substance: FLUTICASONE PROPIONATE\SALMETEROL XINAFOATE
  29. KETOROLAC [Concomitant]
     Active Substance: KETOROLAC TROMETHAMINE
  30. HYDROCODONE/ACETAMINOPHEN [Concomitant]
     Active Substance: ACETAMINOPHEN\HYDROCODONE
  31. EPINEPHRINE. [Concomitant]
     Active Substance: EPINEPHRINE
  32. HYDROCORTISONE AND ACETIC ACID [Concomitant]
     Active Substance: ACETIC ACID\HYDROCORTISONE
  33. FLAGYL [Concomitant]
     Active Substance: METRONIDAZOLE\METRONIDAZOLE HYDROCHLORIDE
  34. PREMARIN [Concomitant]
     Active Substance: ESTROGENS, CONJUGATED
  35. HYDROCORTISONE. [Concomitant]
     Active Substance: HYDROCORTISONE
  36. FAMOTIDINE. [Concomitant]
     Active Substance: FAMOTIDINE
  37. VENTOLIN HFA [Concomitant]
     Active Substance: ALBUTEROL SULFATE
  38. NORMAL SALINE [Concomitant]
     Active Substance: SODIUM CHLORIDE
  39. CORTISONE ACETATE. [Concomitant]
     Active Substance: CORTISONE ACETATE
  40. TIZANIDINE. [Concomitant]
     Active Substance: TIZANIDINE
  41. SODIUM CHLORIDE. [Concomitant]
     Active Substance: SODIUM CHLORIDE
  42. ADVAIR HFA [Concomitant]
     Active Substance: FLUTICASONE PROPIONATE\SALMETEROL XINAFOATE
  43. VITAMIN D [VITAMIN D NOS] [Concomitant]
     Active Substance: VITAMIN D NOS
  44. TROMETHAMINE. [Concomitant]
     Active Substance: TROMETHAMINE
  45. FOLIC ACID. [Concomitant]
     Active Substance: FOLIC ACID

REACTIONS (2)
  - Pain [Unknown]
  - Spinal operation [Unknown]
